FAERS Safety Report 5916528-9 (Version None)
Quarter: 2008Q4

REPORT INFORMATION
  Report Type: 
  Country: None (occurrence: None)
  Receive Date: 20081013
  Receipt Date: 20081002
  Transmission Date: 20090506
  Serious: Yes (Life-Threatening, Hospitalization, Other)
  Sender: FDA-Public Use
  Company Number: B0509235A

PATIENT
  Age: 67 Year
  Sex: Male
  Weight: 84.6 kg

DRUGS (8)
  1. AVANDAMET [Suspect]
     Indication: TYPE 2 DIABETES MELLITUS
     Route: 048
     Dates: start: 20071005, end: 20071105
  2. PANTOPRAZOLE SODIUM [Suspect]
     Route: 048
     Dates: start: 20071023, end: 20071105
  3. FLECAINE [Concomitant]
     Indication: ARRHYTHMIA
     Route: 048
     Dates: end: 20071105
  4. DIAMICRON [Concomitant]
     Indication: TYPE 2 DIABETES MELLITUS
     Dosage: 30MG FOUR TIMES PER DAY
     Route: 048
     Dates: end: 20071105
  5. MEDIATOR [Concomitant]
     Dosage: 150MG THREE TIMES PER DAY
     Route: 048
     Dates: end: 20071105
  6. LOGIMAX [Concomitant]
     Indication: HYPERTENSION
     Route: 048
     Dates: end: 20071105
  7. VALSARTAN AND HYDROCHLOROTHIAZIDE [Concomitant]
     Route: 048
     Dates: end: 20071105
  8. ELISOR [Concomitant]
     Indication: HYPERLIPIDAEMIA
     Route: 048
     Dates: end: 20071105

REACTIONS (24)
  - ATRIAL FIBRILLATION [None]
  - ATRIOVENTRICULAR BLOCK [None]
  - BRAIN NATRIURETIC PEPTIDE INCREASED [None]
  - BUNDLE BRANCH BLOCK RIGHT [None]
  - CARDIAC ARREST [None]
  - CARDIAC FAILURE [None]
  - CHEST PAIN [None]
  - CORONARY ARTERY OCCLUSION [None]
  - DILATATION VENTRICULAR [None]
  - DYSPNOEA [None]
  - EJECTION FRACTION DECREASED [None]
  - GENERAL PHYSICAL HEALTH DETERIORATION [None]
  - HEPATIC FAILURE [None]
  - HEPATITIS ACUTE [None]
  - JAUNDICE [None]
  - MITRAL VALVE INCOMPETENCE [None]
  - MYOCARDIAL INFARCTION [None]
  - MYOCARDIAL ISCHAEMIA [None]
  - OEDEMA PERIPHERAL [None]
  - PROTHROMBIN LEVEL DECREASED [None]
  - PULMONARY OEDEMA [None]
  - TROPONIN INCREASED [None]
  - VENTRICULAR EXTRASYSTOLES [None]
  - VOMITING [None]
